FAERS Safety Report 4407885-3 (Version None)
Quarter: 2004Q3

REPORT INFORMATION
  Report Type: 
  Country: None (occurrence: None)
  Receive Date: 20040726
  Receipt Date: 20040602
  Transmission Date: 20050211
  Serious: No
  Sender: FDA-Public Use
  Company Number: PHNU2004DE01998

PATIENT
  Age: 62 Year
  Sex: Male

DRUGS (3)
  1. PROVAS COMP [Suspect]
     Indication: HYPERTENSION
     Dosage: 1 DF, QD
     Route: 048
     Dates: start: 20040514, end: 20040516
  2. CONCOR PLUS                             /SCH/ [Concomitant]
     Route: 048
  3. ALLOPURINOL [Concomitant]
     Route: 048

REACTIONS (2)
  - BLOOD PRESSURE INCREASED [None]
  - VENTRICULAR EXTRASYSTOLES [None]
